FAERS Safety Report 7917556-4 (Version None)
Quarter: 2011Q4

REPORT INFORMATION
  Report Type: 
  Country: None (occurrence: None)
  Receive Date: 20111116
  Receipt Date: 20111104
  Transmission Date: 20120403
  Serious: Yes (Hospitalization)
  Sender: FDA-Public Use
  Company Number: US-JNJFOC-20111005365

PATIENT
  Sex: Female
  Weight: 61.24 kg

DRUGS (15)
  1. REMICADE [Suspect]
     Indication: COLITIS ULCERATIVE
     Route: 042
     Dates: start: 20110901, end: 20111010
  2. ASACOL [Concomitant]
     Indication: COLITIS ULCERATIVE
     Route: 048
     Dates: start: 20040101
  3. ASACOL [Concomitant]
     Indication: CROHN'S DISEASE
     Route: 048
     Dates: start: 20040101
  4. MERCAPTOPURINE [Concomitant]
     Indication: COLITIS ULCERATIVE
     Route: 048
     Dates: start: 20040101
  5. REMICADE [Suspect]
     Indication: RHEUMATOID ARTHRITIS
     Route: 042
     Dates: start: 20040101, end: 20050101
  6. ELMIRON [Concomitant]
     Indication: CYSTITIS INTERSTITIAL
     Route: 048
     Dates: start: 20010101
  7. TESTOSTERONE [Concomitant]
     Indication: HORMONE REPLACEMENT THERAPY
     Dates: start: 20010101
  8. REMICADE [Suspect]
     Indication: CROHN'S DISEASE
     Route: 042
     Dates: start: 20110901, end: 20111010
  9. REMICADE [Suspect]
     Route: 042
     Dates: start: 20040101, end: 20050101
  10. REMICADE [Suspect]
     Route: 042
     Dates: start: 20110901, end: 20111010
  11. DEPAKOTE [Concomitant]
     Indication: DEPRESSION
     Route: 048
     Dates: start: 20010101
  12. UNSPECIFIED CROHN'S DISEASE THERAPY [Concomitant]
     Indication: CROHN'S DISEASE
     Route: 048
     Dates: start: 20040101
  13. ESTROGENIC SUBSTANCE [Concomitant]
     Indication: HORMONE REPLACEMENT THERAPY
     Dates: start: 20010101
  14. LEXAPRO [Concomitant]
     Indication: DEPRESSION
     Route: 048
     Dates: start: 20010101
  15. REMICADE [Suspect]
     Route: 042
     Dates: start: 20040101, end: 20050101

REACTIONS (24)
  - ELECTROCARDIOGRAM T WAVE INVERSION [None]
  - ERYTHEMA [None]
  - FEELING HOT [None]
  - BURNING SENSATION [None]
  - HORMONE LEVEL ABNORMAL [None]
  - HOSPITALISATION [None]
  - SKIN DISORDER [None]
  - URINARY INCONTINENCE [None]
  - EXFOLIATIVE RASH [None]
  - HYPERTENSION [None]
  - INFUSION RELATED REACTION [None]
  - OCULAR HYPERAEMIA [None]
  - BACK PAIN [None]
  - TONGUE DISORDER [None]
  - DRUG INEFFECTIVE [None]
  - GASTROOESOPHAGEAL REFLUX DISEASE [None]
  - HYPERHIDROSIS [None]
  - DIZZINESS [None]
  - MIGRAINE [None]
  - DYSGEUSIA [None]
  - NAUSEA [None]
  - FATIGUE [None]
  - HYPOTENSION [None]
  - VISION BLURRED [None]
